FAERS Safety Report 24972248 (Version 1)
Quarter: 2025Q1

REPORT INFORMATION
  Report Type: Report from Study
  Country: CA (occurrence: CA)
  Receive Date: 20250214
  Receipt Date: 20250214
  Transmission Date: 20250409
  Serious: Yes (Hospitalization)
  Sender: ABBVIE
  Company Number: CA-ABBVIE-6100707

PATIENT
  Age: 24 Year
  Sex: Male

DRUGS (1)
  1. HUMIRA [Suspect]
     Active Substance: ADALIMUMAB
     Indication: Ankylosing spondylitis
     Route: 058
     Dates: start: 20080815

REACTIONS (4)
  - Traumatic pain [Unknown]
  - Ankylosing spondylitis [Unknown]
  - Concussion [Unknown]
  - Migraine [Unknown]

NARRATIVE: CASE EVENT DATE: 20150101
